FAERS Safety Report 6547623-1 (Version None)
Quarter: 2010Q1

REPORT INFORMATION
  Report Type: 
  Country: None (occurrence: None)
  Receive Date: 20100122
  Receipt Date: 20100120
  Transmission Date: 20100710
  Serious: Yes (Other)
  Sender: FDA-Public Use
  Company Number: US-ABBOTT-09P-163-0573734-00

PATIENT
  Age: 33 Year
  Sex: Female

DRUGS (4)
  1. NORVIR [Suspect]
     Indication: ANTIRETROVIRAL THERAPY
     Route: 048
  2. REYATAZ [Suspect]
     Indication: ANTIRETROVIRAL THERAPY
     Route: 048
  3. VIREAD [Suspect]
     Indication: ANTIRETROVIRAL THERAPY
     Route: 048
  4. EPIVIR [Suspect]
     Indication: ANTIRETROVIRAL THERAPY
     Route: 048

REACTIONS (2)
  - ABORTION SPONTANEOUS [None]
  - DRUG EXPOSURE DURING PREGNANCY [None]
